FAERS Safety Report 16508706 (Version 1)
Quarter: 2019Q3

REPORT INFORMATION
  Report Type: Spontaneous
  Country: GB (occurrence: GB)
  Receive Date: 20190701
  Receipt Date: 20190701
  Transmission Date: 20191004
  Serious: Yes (Hospitalization)
  Sender: FDA-Public Use
  Company Number: GB-TEVA-2019-GB-1070944

PATIENT
  Age: 91 Year
  Sex: Female
  Weight: 60.8 kg

DRUGS (9)
  1. AMLODIPINE [Concomitant]
     Active Substance: AMLODIPINE BESYLATE
  2. APIXABAN [Concomitant]
     Active Substance: APIXABAN
  3. VALSARTAN. [Concomitant]
     Active Substance: VALSARTAN
  4. CO-AMILOFRUSE [Suspect]
     Active Substance: AMILORIDE\FUROSEMIDE
     Dosage: MORNING. 2.5/20MG,1DOSAGE FORM PER DAY
     Route: 048
  5. QUININE [Concomitant]
     Active Substance: QUININE
  6. OMEPRAZOLE. [Suspect]
     Active Substance: OMEPRAZOLE
     Dosage: MORNING 20MG PER DAY
     Route: 048
  7. ATORVASTATIN [Concomitant]
     Active Substance: ATORVASTATIN
  8. LEVOTHYROXINE. [Concomitant]
     Active Substance: LEVOTHYROXINE
  9. METFORMIN [Concomitant]
     Active Substance: METFORMIN HYDROCHLORIDE

REACTIONS (2)
  - Prescription drug used without a prescription [Unknown]
  - Hyponatraemia [Recovering/Resolving]
